FAERS Safety Report 9261183 (Version 1)
Quarter: 2013Q2

REPORT INFORMATION
  Report Type: Spontaneous
  Country: JP (occurrence: JP)
  Receive Date: 20130429
  Receipt Date: 20130429
  Transmission Date: 20140414
  Serious: Yes (Other)
  Sender: FDA-Public Use
  Company Number: PHHY2013JP041580

PATIENT
  Age: 2 Year
  Sex: 0

DRUGS (3)
  1. TEGRETOL [Suspect]
     Indication: CONVULSION
     Route: 048
  2. ALEVIATIN [Concomitant]
  3. THYRADIN [Concomitant]

REACTIONS (6)
  - Protein urine present [Unknown]
  - Blood cholesterol increased [Unknown]
  - Drug hypersensitivity [Unknown]
  - C-reactive protein increased [Unknown]
  - Hair growth abnormal [Unknown]
  - Ataxia [Unknown]
